FAERS Safety Report 9467402 (Version 1)
Quarter: 2013Q3

REPORT INFORMATION
  Report Type: Spontaneous
  Country: US (occurrence: None)
  Receive Date: 20130819
  Receipt Date: 20130819
  Transmission Date: 20140515
  Serious: Yes (Life-Threatening, Hospitalization)
  Sender: FDA-Public Use
  Company Number: None

PATIENT
  Age: 18 Year
  Sex: Male
  Weight: 61 kg

DRUGS (3)
  1. PEGASPARAGASE [Suspect]
     Indication: ACUTE LYMPHOCYTIC LEUKAEMIA
     Dosage: 4,125 UNITS  --  INTRAVENOUS
     Route: 042
     Dates: start: 20130328, end: 20130328
  2. PLATELETS [Concomitant]
  3. VINCRISTINE [Concomitant]

REACTIONS (4)
  - Unresponsive to stimuli [None]
  - Pallor [None]
  - Erythema [None]
  - Vomiting [None]
